FAERS Safety Report 10560144 (Version 5)
Quarter: 2015Q1

REPORT INFORMATION
  Report Type: Spontaneous
  Country: BR (occurrence: BR)
  Receive Date: 20141103
  Receipt Date: 20150217
  Transmission Date: 20150720
  Serious: Yes (Death, Hospitalization, Other)
  Sender: FDA-Public Use
  Company Number: BR-SA-2014SA146737

PATIENT
  Age: 70 Year
  Sex: Female
  Weight: 70 kg

DRUGS (5)
  1. LANTUS [Suspect]
     Active Substance: INSULIN GLARGINE
     Indication: TYPE 2 DIABETES MELLITUS
     Route: 058
     Dates: start: 1994, end: 201501
  2. AUTOPEN 24 [Concomitant]
     Active Substance: DEVICE
  3. ALDACTONE [Concomitant]
     Active Substance: SPIRONOLACTONE
  4. ARADOIS [Concomitant]
     Active Substance: LOSARTAN POTASSIUM
  5. CLOPIDOGREL [Concomitant]
     Active Substance: CLOPIDOGREL BISULFATE

REACTIONS (8)
  - Joint swelling [Not Recovered/Not Resolved]
  - Infection [Unknown]
  - Cerebrovascular accident [Fatal]
  - Arterial occlusive disease [Unknown]
  - Tibia fracture [Recovered/Resolved]
  - Arthralgia [Not Recovered/Not Resolved]
  - Meniscus injury [Not Recovered/Not Resolved]
  - Pain [Recovered/Resolved]

NARRATIVE: CASE EVENT DATE: 20150128
